FAERS Safety Report 4717512-3 (Version None)
Quarter: 2005Q3

REPORT INFORMATION
  Report Type: 
  Country: None (occurrence: None)
  Receive Date: 20050715
  Receipt Date: 20050701
  Transmission Date: 20060218
  Serious: Yes (Hospitalization)
  Sender: FDA-Public Use
  Company Number: 2005-0008473

PATIENT
  Age: 53 Year
  Sex: Male
  Weight: 64 kg

DRUGS (4)
  1. TRUVADA [Suspect]
     Indication: HIV INFECTION
     Dates: end: 20050630
  2. SUSTIVA [Concomitant]
  3. DAPSONE [Concomitant]
  4. ACYCLOVIR [Concomitant]

REACTIONS (1)
  - PERIPHERAL EMBOLISM [None]
